FAERS Safety Report 6355135-3 (Version None)
Quarter: 2009Q3

REPORT INFORMATION
  Report Type: 
  Country: None (occurrence: None)
  Receive Date: 20090909
  Receipt Date: 20090826
  Transmission Date: 20100115
  Serious: Yes (Life-Threatening, Hospitalization, Other)
  Sender: FDA-Public Use
  Company Number: 2009-03559

PATIENT
  Age: 75 Year
  Sex: Male

DRUGS (5)
  1. VELCADE [Suspect]
     Indication: MULTIPLE MYELOMA
     Dosage: 1.3 MG/MW; INTRAVENOUS; 1 MG/M2, 0.7 MG/M2; INTRAVENOUS
     Route: 042
     Dates: start: 20090508, end: 20090710
  2. VELCADE [Suspect]
     Indication: MULTIPLE MYELOMA
     Dosage: 1.3 MG/MW; INTRAVENOUS; 1 MG/M2, 0.7 MG/M2; INTRAVENOUS
     Route: 042
     Dates: start: 20090818, end: 20090825
  3. VELCADE [Suspect]
     Indication: MULTIPLE MYELOMA
     Dosage: 1.3 MG/MW; INTRAVENOUS; 1 MG/M2, 0.7 MG/M2; INTRAVENOUS
     Route: 042
     Dates: start: 20090825
  4. MELPHALAN [Concomitant]
  5. PREDNISONE [Concomitant]

REACTIONS (4)
  - ACUTE FEBRILE NEUTROPHILIC DERMATOSIS [None]
  - CONDITION AGGRAVATED [None]
  - NEUROPATHY PERIPHERAL [None]
  - SEPTIC SHOCK [None]
